FAERS Safety Report 14625888 (Version 1)
Quarter: 2018Q1

REPORT INFORMATION
  Report Type: Spontaneous
  Country: FR (occurrence: FR)
  Receive Date: 20180312
  Receipt Date: 20180312
  Transmission Date: 20180509
  Serious: Yes (Hospitalization)
  Sender: FDA-Public Use
  Company Number: FR-UCBSA-2018009236

PATIENT
  Age: 43 Year
  Sex: Female

DRUGS (1)
  1. CIMZIA [Suspect]
     Active Substance: CERTOLIZUMAB PEGOL
     Indication: ANKYLOSING SPONDYLITIS
     Dosage: 1 INJECTION
     Route: 058
     Dates: start: 201712, end: 201802

REACTIONS (4)
  - Dysarthria [Recovered/Resolved]
  - Headache [Recovered/Resolved]
  - Aphasia [Recovered/Resolved]
  - Hemianopia homonymous [Recovered/Resolved]

NARRATIVE: CASE EVENT DATE: 20180212
